FAERS Safety Report 25983815 (Version 1)
Quarter: 2025Q4

REPORT INFORMATION
  Report Type: Spontaneous
  Country: US (occurrence: None)
  Receive Date: 20251030
  Receipt Date: 20251030
  Transmission Date: 20260118
  Serious: Yes (Hospitalization)
  Sender: FDA-CTU
  Company Number: None

PATIENT
  Age: 70 Year
  Sex: Male

DRUGS (11)
  1. MYCOPHENOLIC ACID [Suspect]
     Active Substance: MYCOPHENOLIC ACID
     Indication: Lung transplant
     Dosage: FREQUENCY : TWICE A DAY;?
     Route: 048
     Dates: start: 20250821
  2. ALLOPURINOL [Concomitant]
     Active Substance: ALLOPURINOL
  3. VITAMIN B-121000MCG TABLETS [Concomitant]
  4. TAMSULOSIN [Concomitant]
     Active Substance: TAMSULOSIN
  5. ZINC SULFATE 220MG CAPSULES [Concomitant]
  6. PROGRAF 0.2MG ORAL GRANULES [Concomitant]
  7. VALGANCICLOVIR 450MG TABLETS [Concomitant]
  8. LANTUS SOLOSTAR PEN INJ 3ML [Concomitant]
  9. MEGESTROL ACETATE 40MG TABLETS [Concomitant]
  10. OLANZAPINE [Concomitant]
     Active Substance: OLANZAPINE
  11. MODAFINIL [Concomitant]
     Active Substance: MODAFINIL

REACTIONS (1)
  - Pleurodesis [None]
